FAERS Safety Report 8408527-2 (Version None)
Quarter: 2012Q2

REPORT INFORMATION
  Report Type: 
  Country: None (occurrence: None)
  Receive Date: 20120604
  Receipt Date: 20120522
  Transmission Date: 20120825
  Serious: Yes (Hospitalization)
  Sender: FDA-Public Use
  Company Number: US-MYLANLABS-2012S1010905

PATIENT
  Age: 32 Year
  Sex: Male

DRUGS (2)
  1. FENTANYL-100 [Suspect]
     Indication: SUICIDE ATTEMPT
     Dosage: CHEWED, INGESTED 2X 50 MICROG TRANSDERMAL PATCHES
     Route: 048
  2. ALPRAZOLAM [Suspect]
     Indication: SUICIDE ATTEMPT
     Dosage: INGESTED 6-8MG
     Route: 048

REACTIONS (11)
  - MENTAL STATUS CHANGES [None]
  - INCORRECT ROUTE OF DRUG ADMINISTRATION [None]
  - TOXICITY TO VARIOUS AGENTS [None]
  - BRADYCARDIA [None]
  - UNRESPONSIVE TO STIMULI [None]
  - INTENTIONAL OVERDOSE [None]
  - NEUROLOGICAL EXAMINATION ABNORMAL [None]
  - DEPRESSED LEVEL OF CONSCIOUSNESS [None]
  - DIZZINESS [None]
  - MIOSIS [None]
  - SOMNOLENCE [None]
